FAERS Safety Report 15679645 (Version 1)
Quarter: 2018Q4

REPORT INFORMATION
  Report Type: Spontaneous
  Country: DE (occurrence: DE)
  Receive Date: 20181203
  Receipt Date: 20181203
  Transmission Date: 20190205
  Serious: Yes (Other)
  Sender: FDA-Public Use
  Company Number: DE-ASTRAZENECA-2018SF56819

PATIENT
  Age: 40 Year
  Sex: Female

DRUGS (6)
  1. CETIRIZINE [Suspect]
     Active Substance: CETIRIZINE HYDROCHLORIDE
     Indication: HISTAMINE INTOLERANCE
     Dosage: USAGE AS REQUIRED
     Route: 065
  2. CETIRIZIN TROPFEN [Concomitant]
     Dosage: TOLERATED CONDITIONALLY, ALCOHOL OF DRUG BURNS IN THE MUSCLE, BECAUSE EVERYTHING IS IRRITATED APPARE
     Route: 048
  3. NITROFURANTOIN. [Suspect]
     Active Substance: NITROFURANTOIN
     Dosage: USAGE AS REQUIRED
     Route: 048
  4. IBUPROFEN. [Concomitant]
     Active Substance: IBUPROFEN
     Dosage: USAGE AS REQUIRED
  5. CANDESARTAN. [Suspect]
     Active Substance: CANDESARTAN
     Indication: HISTAMINE INTOLERANCE
     Dosage: USAGE AS REQUIRED
     Route: 048
  6. ESOMEPRAZOLE. [Suspect]
     Active Substance: ESOMEPRAZOLE MAGNESIUM
     Indication: HISTAMINE INTOLERANCE
     Dosage: USAGE AS REQUIRED
     Route: 048

REACTIONS (7)
  - Gastritis [Unknown]
  - Back pain [Unknown]
  - Abdominal discomfort [Unknown]
  - Drug intolerance [Unknown]
  - Pneumonitis [Unknown]
  - Burning sensation [Unknown]
  - Apathy [Unknown]

NARRATIVE: CASE EVENT DATE: 2017
